FAERS Safety Report 7249111-6 (Version None)
Quarter: 2011Q1

REPORT INFORMATION
  Report Type: 
  Country: None (occurrence: None)
  Receive Date: 20110121
  Receipt Date: 20110121
  Transmission Date: 20110831
  Serious: No
  Sender: FDA-Public Use
  Company Number: None

PATIENT
  Age: 60 Year
  Sex: Female
  Weight: 77.1115 kg

DRUGS (1)
  1. TRIAD ALCOHOL WIPE TRIAD [Suspect]
     Indication: THERAPEUTIC SKIN CARE TOPICAL

REACTIONS (5)
  - PRODUCT QUALITY ISSUE [None]
  - INJECTION SITE SWELLING [None]
  - INJECTION SITE HAEMATOMA [None]
  - INJECTION SITE REACTION [None]
  - INJECTION SITE ERYTHEMA [None]
